FAERS Safety Report 14324597 (Version 1)
Quarter: 2017Q4

REPORT INFORMATION
  Report Type: Spontaneous
  Country: US (occurrence: US)
  Receive Date: 20171226
  Receipt Date: 20171226
  Transmission Date: 20180321
  Serious: Yes (Death)
  Sender: FDA-Public Use
  Company Number: None

PATIENT
  Age: 46 Year
  Sex: Male
  Weight: 104.33 kg

DRUGS (24)
  1. DIAZEPAM. [Concomitant]
     Active Substance: DIAZEPAM
  2. TAMSULOSIN [Concomitant]
     Active Substance: TAMSULOSIN
  3. BENZTROPINE [Concomitant]
     Active Substance: BENZTROPINE
  4. SYMBICORT ACR [Concomitant]
  5. IBPROFEN [Concomitant]
  6. OLANZAPINE. [Concomitant]
     Active Substance: OLANZAPINE
  7. TRAZODONE [Concomitant]
     Active Substance: TRAZODONE HYDROCHLORIDE
  8. DEXILANT [Concomitant]
     Active Substance: DEXLANSOPRAZOLE
  9. STOOL SOFTNERS [Concomitant]
  10. MUSINEX [Concomitant]
  11. OXYBUTYNIN. [Concomitant]
     Active Substance: OXYBUTYNIN CHLORIDE
  12. INGREZZA [Suspect]
     Active Substance: VALBENAZINE
     Indication: DYSKINESIA
     Dosage: NDC NUMBER - G TIN 0037-03701?08010?SN-000/0000 3670
     Route: 048
     Dates: start: 20170828, end: 20171028
  13. TRAMADOL HCL [Concomitant]
     Active Substance: TRAMADOL HYDROCHLORIDE
  14. PROAIR HFA [Concomitant]
     Active Substance: ALBUTEROL SULFATE
  15. ALLERGY MEDS [Concomitant]
  16. ALKASELSER [Concomitant]
  17. SPIRIVA [Suspect]
     Active Substance: TIOTROPIUM BROMIDE MONOHYDRATE
  18. CRANBERRY. [Concomitant]
     Active Substance: CRANBERRY
  19. HYDROCO/APAP [Concomitant]
     Active Substance: ACETAMINOPHEN\HYDROCODONE
  20. METOPROLOL TARTRATE. [Concomitant]
     Active Substance: METOPROLOL TARTRATE
  21. ZOLPIDEM [Concomitant]
     Active Substance: ZOLPIDEM\ZOLPIDEM TARTRATE
  22. DULUXETINE [Concomitant]
  23. MALOXINE [Concomitant]
     Active Substance: PYRIMETHAMINE\SULFADOXINE
  24. GAS PILLS [Concomitant]

REACTIONS (1)
  - Toxicity to various agents [None]

NARRATIVE: CASE EVENT DATE: 20171028
